FAERS Safety Report 7431000-5 (Version None)
Quarter: 2011Q2

REPORT INFORMATION
  Report Type: 
  Country: None (occurrence: None)
  Receive Date: 20110421
  Receipt Date: 20110331
  Transmission Date: 20111010
  Serious: No
  Sender: FDA-Public Use
  Company Number: US-BAYER-2011-028396

PATIENT
  Age: 35 Year
  Sex: Female
  Weight: 63.492 kg

DRUGS (1)
  1. MAGNEVIST [Suspect]
     Indication: ANGIOGRAM
     Route: 042

REACTIONS (2)
  - URTICARIA [None]
  - WHEEZING [None]
